FAERS Safety Report 6474684-0 (Version None)
Quarter: 2009Q4

REPORT INFORMATION
  Report Type: 
  Country: None (occurrence: None)
  Receive Date: 20091204
  Receipt Date: 20091130
  Transmission Date: 20100525
  Serious: Yes (Death, Hospitalization)
  Sender: FDA-Public Use
  Company Number: BO-PFIZER INC-2009300929

PATIENT
  Age: 73 Year
  Sex: Male

DRUGS (3)
  1. CELEBREX [Suspect]
     Indication: NEURALGIA
     Dosage: 200 MG, 1X/DAY
     Route: 048
     Dates: start: 20090720
  2. LYRICA [Suspect]
     Indication: NEURALGIA
     Dosage: 75 MG, 1X/DAY
     Route: 048
     Dates: start: 20090720
  3. PHENYTOIN [Concomitant]
     Indication: CONVULSION

REACTIONS (2)
  - CEREBRAL ARTERY EMBOLISM [None]
  - PNEUMONIA [None]
